FAERS Safety Report 9236098 (Version 1)
Quarter: 2013Q2

REPORT INFORMATION
  Report Type: Spontaneous
  Country: IE (occurrence: IE)
  Receive Date: 20130417
  Receipt Date: 20130417
  Transmission Date: 20140414
  Serious: Yes (Other)
  Sender: FDA-Public Use
  Company Number: PHHY2013IE036211

PATIENT
  Age: 52 Year
  Sex: Female

DRUGS (6)
  1. STALEVO [Suspect]
     Indication: PARKINSON^S DISEASE
     Dosage: 100 MG, 6 TIMES DAILY
  2. AMANTADINE [Suspect]
     Indication: PARKINSON^S DISEASE
     Dosage: 100 MG, TID
  3. SELEGILINE [Suspect]
     Indication: PARKINSON^S DISEASE
     Dosage: 5 MG, DAILY
  4. PRAMIPEXOLE [Suspect]
     Indication: PARKINSON^S DISEASE
     Dosage: 0.18 MG, DAILY
  5. ALPRAZOLAM [Suspect]
     Indication: PARKINSON^S DISEASE
     Dosage: 0.5 MG, DAILY
  6. ESCITALOPRAM [Suspect]
     Indication: PARKINSON^S DISEASE
     Dosage: 10 MG, DAILY

REACTIONS (7)
  - Poisoning deliberate [Unknown]
  - Impulse-control disorder [Unknown]
  - Sexually inappropriate behaviour [Unknown]
  - Compulsive shopping [Unknown]
  - Hypersexuality [Recovering/Resolving]
  - Libido increased [Unknown]
  - Depression [Recovering/Resolving]
